FAERS Safety Report 26216606 (Version 1)
Quarter: 2025Q4

REPORT INFORMATION
  Report Type: Spontaneous
  Country: US (occurrence: US)
  Receive Date: 20251231
  Receipt Date: 20251231
  Transmission Date: 20260118
  Serious: Yes (Other)
  Sender: SANOFI AVENTIS
  Company Number: US-DialogSolutions-SAAVPROD-PI858139-C1

PATIENT
  Age: 42 Year
  Sex: Female

DRUGS (3)
  1. DOCETAXEL [Suspect]
     Active Substance: DOCETAXEL
     Indication: Ewing^s sarcoma recurrent
     Dosage: UNK UNK, QCY
  2. GEMCITABINE [Suspect]
     Active Substance: GEMCITABINE
     Indication: Ewing^s sarcoma recurrent
     Dosage: UNK UNK, QCY
  3. FIGITUMUMAB [Concomitant]
     Active Substance: FIGITUMUMAB
     Indication: Ewing^s sarcoma recurrent
     Dosage: 30 MG/KG, QCY
     Route: 042

REACTIONS (4)
  - Septic shock [Recovered/Resolved]
  - Febrile neutropenia [Recovered/Resolved]
  - Off label use [Recovered/Resolved]
  - Respiratory tract infection [Recovered/Resolved]
